FAERS Safety Report 6648062-5 (Version None)
Quarter: 2010Q1

REPORT INFORMATION
  Report Type: 
  Country: None (occurrence: None)
  Receive Date: 20100324
  Receipt Date: 20100317
  Transmission Date: 20100710
  Serious: Yes (Disabling)
  Sender: FDA-Public Use
  Company Number: PHHY2010CA16422

PATIENT
  Sex: Female

DRUGS (9)
  1. EXELON [Suspect]
     Indication: DEMENTIA
     Dosage: 10
     Route: 062
     Dates: start: 20090409, end: 20100108
  2. AMLODIPINE [Concomitant]
     Dosage: UNK
  3. ASPIRIN [Concomitant]
  4. VENLAFAXINE [Concomitant]
  5. ATARAX [Concomitant]
  6. TRAZODONE HCL [Concomitant]
  7. MONOCOR [Concomitant]
  8. MEMANTINE HCL [Concomitant]
  9. IRBESARTAN [Concomitant]

REACTIONS (3)
  - DYSPEPSIA [None]
  - NAUSEA [None]
  - VOMITING [None]
